FAERS Safety Report 18985216 (Version 1)
Quarter: 2021Q1

REPORT INFORMATION
  Report Type: Report from Study
  Country: US (occurrence: US)
  Receive Date: 20210309
  Receipt Date: 20210309
  Transmission Date: 20210420
  Serious: Yes (Death)
  Sender: FDA-Public Use
  Company Number: US-SUN PHARMACEUTICAL INDUSTRIES LTD-2021R1-284760

PATIENT
  Age: 77 Year
  Sex: Male

DRUGS (1)
  1. YONSA [Suspect]
     Active Substance: ABIRATERONE ACETATE
     Indication: PROSTATE CANCER
     Dosage: 4 TABLETS, QD
     Route: 048
     Dates: start: 20191122, end: 20210118

REACTIONS (1)
  - Death [Fatal]

NARRATIVE: CASE EVENT DATE: 20210127
